FAERS Safety Report 12976067 (Version 1)
Quarter: 2016Q4

REPORT INFORMATION
  Report Type: Spontaneous
  Country: US (occurrence: US)
  Receive Date: 20161126
  Receipt Date: 20161126
  Transmission Date: 20170207
  Serious: Yes (Hospitalization)
  Sender: FDA-Public Use
  Company Number: US-ASTRAZENECA-2016SF24470

PATIENT
  Age: 26318 Day
  Sex: Male
  Weight: 109.3 kg

DRUGS (3)
  1. METOPROLOL SUCCINATE. [Suspect]
     Active Substance: METOPROLOL SUCCINATE
     Route: 048
     Dates: start: 20060215
  2. CRESTOR [Suspect]
     Active Substance: ROSUVASTATIN CALCIUM
     Indication: BLOOD CHOLESTEROL INCREASED
     Dosage: DAILY
     Route: 048
     Dates: start: 2006, end: 2006
  3. BRILINTA [Suspect]
     Active Substance: TICAGRELOR
     Indication: STENT PLACEMENT
     Route: 048
     Dates: start: 20160814

REACTIONS (9)
  - Acute myocardial infarction [Unknown]
  - Dyspnoea [Unknown]
  - Body height decreased [Unknown]
  - Epistaxis [Recovered/Resolved]
  - Therapy change [Unknown]
  - Haemorrhage [Unknown]
  - Contusion [Unknown]
  - Impaired healing [Unknown]
  - Arthralgia [Unknown]

NARRATIVE: CASE EVENT DATE: 20160215
